FAERS Safety Report 8170227-4 (Version None)
Quarter: 2012Q1

REPORT INFORMATION
  Report Type: 
  Country: None (occurrence: None)
  Receive Date: 20120228
  Receipt Date: 20120222
  Transmission Date: 20120608
  Serious: Yes (Hospitalization)
  Sender: FDA-Public Use
  Company Number: US-AMGEN-USASP2012011845

PATIENT
  Age: 52 Year
  Sex: Female
  Weight: 73 kg

DRUGS (9)
  1. BEVACIZUMAB [Suspect]
     Indication: BREAST CANCER
     Dosage: 10 MG/KG, UNK
     Route: 042
     Dates: start: 20081103, end: 20090119
  2. PACLITAXEL [Suspect]
     Indication: BREAST CANCER
     Dosage: 80 MG/M2, UNK
     Route: 042
     Dates: start: 20081103
  3. RUBEX                              /00008001/ [Concomitant]
     Dosage: UNK
     Dates: start: 20081201
  4. CYCLOPHOSPHAMIDE [Suspect]
     Indication: BREAST CANCER
     Dosage: 600 MG/M2, UNK
     Route: 042
     Dates: start: 20081103
  5. DOXORUBICIN HCL [Suspect]
     Indication: BREAST CANCER
     Dosage: 60 MG/M2, UNK
     Route: 042
     Dates: start: 20081103
  6. NEOSAR [Concomitant]
     Dosage: UNK
     Dates: start: 20081201
  7. CYTOXAN [Concomitant]
     Dosage: UNK
     Dates: start: 20081201
  8. NEULASTA [Suspect]
     Indication: BREAST CANCER
     Dosage: 6 MG, UNK
     Route: 058
     Dates: start: 20081104
  9. ADRIAMYCIN PFS [Concomitant]
     Dosage: UNK
     Dates: start: 20081201

REACTIONS (5)
  - PAIN [None]
  - PYREXIA [None]
  - PNEUMONITIS [None]
  - DYSPNOEA [None]
  - CHILLS [None]
